FAERS Safety Report 8607486-7 (Version None)
Quarter: 2012Q3

REPORT INFORMATION
  Report Type: 
  Country: None (occurrence: None)
  Receive Date: 20120809
  Receipt Date: 20120809
  Transmission Date: 20120928
  Serious: Yes (Hospitalization)
  Sender: FDA-Public Use
  Company Number: None

PATIENT
  Age: 79 Year
  Sex: Male
  Weight: 86.8 kg

DRUGS (2)
  1. CITALOPRAM HYDROBROMIDE [Suspect]
     Dosage: 20 MG HS PO
     Route: 048
     Dates: start: 20080117, end: 20120328
  2. WARFARIN SODIUM [Suspect]
     Dates: start: 20101108, end: 20120328

REACTIONS (5)
  - INTERNATIONAL NORMALISED RATIO INCREASED [None]
  - MELAENA [None]
  - ANAEMIA [None]
  - GASTRIC HAEMORRHAGE [None]
  - SELF-MEDICATION [None]
